FAERS Safety Report 6292147-2 (Version None)
Quarter: 2009Q3

REPORT INFORMATION
  Report Type: 
  Country: None (occurrence: None)
  Receive Date: 20090730
  Receipt Date: 20090730
  Transmission Date: 20100115
  Serious: Yes (Life-Threatening)
  Sender: FDA-Public Use
  Company Number: None

PATIENT
  Age: 68 Year
  Sex: Female
  Weight: 65.7716 kg

DRUGS (3)
  1. AMBIEN [Suspect]
     Indication: DEPRESSION
     Dosage: 20MG 1 AT BEDTIME PO
     Route: 048
     Dates: start: 20080910, end: 20081029
  2. CITALOPRAM HYDROBROMIDE [Concomitant]
  3. ZOPENEX [Concomitant]

REACTIONS (5)
  - ABNORMAL SLEEP-RELATED EVENT [None]
  - ALCOHOL USE [None]
  - AMNESIA [None]
  - ROAD TRAFFIC ACCIDENT [None]
  - SOMNAMBULISM [None]
